FAERS Safety Report 6372095-X (Version None)
Quarter: 2009Q3

REPORT INFORMATION
  Report Type: 
  Country: None (occurrence: None)
  Receive Date: 20090917
  Receipt Date: 20090904
  Transmission Date: 20100115
  Serious: Yes (Other)
  Sender: FDA-Public Use
  Company Number: ADR18792009

PATIENT
  Age: 29 Year
  Sex: Male

DRUGS (4)
  1. SALBUTAMOL (MFR: UNKNOWN) [Suspect]
  2. CETIRIZINE HYDROCHLORIDE (UNKNOWN) [Concomitant]
  3. VARENICLINE TARTRATE (1 MG) [Concomitant]
  4. LOSARTAN POTASSIUM (UNKNOWN) [Concomitant]

REACTIONS (1)
  - CONVULSION [None]
